FAERS Safety Report 18079885 (Version 1)
Quarter: 2020Q3

REPORT INFORMATION
  Report Type: Spontaneous
  Country: US (occurrence: US)
  Receive Date: 20200728
  Receipt Date: 20200728
  Transmission Date: 20201103
  Serious: No
  Sender: FDA-Public Use
  Company Number: None

PATIENT
  Age: 39 Year
  Sex: Female
  Weight: 49 kg

DRUGS (1)
  1. ETOPOSIDE. [Suspect]
     Active Substance: ETOPOSIDE
     Indication: CERVIX CARCINOMA
     Dosage: ?          OTHER FREQUENCY:QD X3 DAYS;?
     Route: 041
     Dates: start: 20200727, end: 20200727

REACTIONS (4)
  - Palpitations [None]
  - Chills [None]
  - Flushing [None]
  - Sensory disturbance [None]

NARRATIVE: CASE EVENT DATE: 20200727
